FAERS Safety Report 13040628 (Version 1)
Quarter: 2016Q4

REPORT INFORMATION
  Report Type: Spontaneous
  Country: US (occurrence: US)
  Receive Date: 20161219
  Receipt Date: 20161219
  Transmission Date: 20170207
  Serious: No
  Sender: FDA-Public Use
  Company Number: None

PATIENT
  Age: 61 Year
  Sex: Male
  Weight: 121.5 kg

DRUGS (7)
  1. XGEVA [Suspect]
     Active Substance: DENOSUMAB
     Indication: PROSTATE CANCER
     Dosage: ?          QUANTITY:120 INJECTION(S);OTHER FREQUENCY:MONTHLY;?
     Route: 030
  2. LUPRON [Suspect]
     Active Substance: LEUPROLIDE ACETATE
     Indication: PROSTATE CANCER
     Dosage: ?          QUANTITY:22.5 INJECTION(S);OTHER FREQUENCY:3MONTHS;?
     Route: 030
  3. TINORMIN [Concomitant]
  4. LUMIGAN [Concomitant]
     Active Substance: BIMATOPROST
  5. MAGNISIUM [Concomitant]
  6. VITAMIN D3 [Concomitant]
     Active Substance: CHOLECALCIFEROL
  7. CALCIUM [Concomitant]
     Active Substance: CALCIUM

REACTIONS (2)
  - Mydriasis [None]
  - Vision blurred [None]

NARRATIVE: CASE EVENT DATE: 20161130
